FAERS Safety Report 6606736-6 (Version None)
Quarter: 2010Q1

REPORT INFORMATION
  Report Type: 
  Country: None (occurrence: None)
  Receive Date: 20100226
  Receipt Date: 20100217
  Transmission Date: 20100710
  Serious: Yes (Hospitalization, Disabling)
  Sender: FDA-Public Use
  Company Number: FR-GENENTECH-298511

PATIENT
  Sex: Male
  Weight: 63 kg

DRUGS (6)
  1. RITUXIMAB [Suspect]
     Indication: MANTLE CELL LYMPHOMA
     Dosage: 900 MG, QAM
     Route: 041
     Dates: start: 20091027, end: 20091027
  2. CARMUSTINE [Suspect]
     Indication: MANTLE CELL LYMPHOMA
     Dosage: 500 MG, QAM
     Route: 042
     Dates: start: 20091028, end: 20091028
  3. CYTARABINE [Suspect]
     Indication: MANTLE CELL LYMPHOMA
     Dosage: 680 MG, QAM
     Route: 042
     Dates: start: 20091028, end: 20091101
  4. ETOPOSIDE [Suspect]
     Indication: MANTLE CELL LYMPHOMA
     Dosage: 700 MG, QAM
     Route: 042
     Dates: start: 20091028, end: 20091028
  5. ZELITREX [Concomitant]
     Indication: PROPHYLAXIS
     Dosage: 400 MG, QAM
     Route: 042
     Dates: start: 20090624
  6. BACTRIM [Concomitant]
     Indication: PROPHYLAXIS
     Dosage: 400 MG, QAM
     Dates: start: 20090624

REACTIONS (1)
  - AORTIC THROMBOSIS [None]
